FAERS Safety Report 6939838-5 (Version None)
Quarter: 2010Q3

REPORT INFORMATION
  Report Type: 
  Country: None (occurrence: None)
  Receive Date: 20100825
  Receipt Date: 20100412
  Transmission Date: 20110219
  Serious: Yes (Other)
  Sender: FDA-Public Use
  Company Number: US-ASTRAZENECA-2009UW02756

PATIENT
  Age: 15591 Day
  Sex: Female
  Weight: 78.9 kg

DRUGS (7)
  1. SEROQUEL [Suspect]
     Route: 048
  2. BENADRYL [Concomitant]
     Dates: start: 20060828
  3. GLYBURIDE [Concomitant]
     Dates: start: 20060828
  4. GEMFIBROZIL [Concomitant]
     Dates: start: 20060828
  5. LISINOPRIL [Concomitant]
     Dates: start: 20060828
  6. ASPIRIN [Concomitant]
     Dates: start: 20060828
  7. LYRICA [Concomitant]
     Dates: start: 20060828

REACTIONS (2)
  - DIABETIC NEUROPATHY [None]
  - TYPE 2 DIABETES MELLITUS [None]
